FAERS Safety Report 20690060 (Version 6)
Quarter: 2023Q2

REPORT INFORMATION
  Report Type: Spontaneous
  Country: US (occurrence: US)
  Receive Date: 20220408
  Receipt Date: 20230629
  Transmission Date: 20230721
  Serious: Yes (Hospitalization)
  Sender: FDA-Public Use
  Company Number: US-SA-SAC20220405001887

PATIENT
  Age: 62 Year
  Sex: Female

DRUGS (26)
  1. DUPIXENT [Suspect]
     Active Substance: DUPILUMAB
     Indication: Asthma
     Dosage: 300 MG, QOW
     Route: 058
     Dates: start: 20220208
  2. ALBUTEROL SULFATE [Concomitant]
     Active Substance: ALBUTEROL SULFATE
     Dosage: UNK
  3. ALBUTEROL SULFATE [Concomitant]
     Active Substance: ALBUTEROL SULFATE
     Dosage: UNK
  4. BENZONATATE [Concomitant]
     Active Substance: BENZONATATE
     Dosage: BENZONATATE CAP 100MG
  5. BUSPIRONE [Concomitant]
     Active Substance: BUSPIRONE HYDROCHLORIDE
     Dosage: 15 MG
  6. DULERA [Concomitant]
     Active Substance: FORMOTEROL FUMARATE DIHYDRATE\MOMETASONE FUROATE
     Dosage: DULERA AER 200-5MCG
  7. FASENRA [Concomitant]
     Active Substance: BENRALIZUMAB
     Dosage: 30 MG/ML
  8. FLUTICASONE [Concomitant]
     Active Substance: FLUTICASONE
     Dosage: 50MCG
  9. IPRATROPIUM [Concomitant]
     Active Substance: IPRATROPIUM
     Dosage: IPHATROPIUM SOL 0.02INH
  10. LEVOTHYROXINE [Concomitant]
     Active Substance: LEVOTHYROXINE
     Dosage: 100MCG
  11. MONTELUKAST SODIUM [Concomitant]
     Active Substance: MONTELUKAST SODIUM
     Dosage: UNK
  12. PANTOPRAZOLE [Concomitant]
     Active Substance: PANTOPRAZOLE
     Dosage: 40MG
  13. SYMBICORT [Concomitant]
     Active Substance: BUDESONIDE\FORMOTEROL FUMARATE DIHYDRATE
     Dosage: SYMBICORT AER 160-4.5
  14. ESCITALOPRAM [Concomitant]
     Active Substance: ESCITALOPRAM OXALATE
     Dosage: 30 MG
  15. FASENRA [Concomitant]
     Active Substance: BENRALIZUMAB
  16. GABAPENTIN [Concomitant]
     Active Substance: GABAPENTIN
     Dosage: UNK
  17. LOVASTATIN [Concomitant]
     Active Substance: LOVASTATIN
     Dosage: UNK
  18. MONTELUKAST [Concomitant]
     Active Substance: MONTELUKAST SODIUM
     Dosage: UNK
  19. PREDNISONE [Concomitant]
     Active Substance: PREDNISONE
     Dosage: UNK
  20. SHINGRIX [Concomitant]
     Active Substance: RECOMBINANT VARICELLA ZOSTER VIRUS (VZV) GLYCOPROTEIN E
     Dosage: 50/0.5ML
  21. VALACYCLOVIR HYDROCHLORIDE [Concomitant]
     Active Substance: VALACYCLOVIR HYDROCHLORIDE
     Dosage: UNK
  22. ALBUTEROL [Concomitant]
     Active Substance: ALBUTEROL
     Dosage: UNK
  23. CYCLOBENZAPRINE [Concomitant]
     Active Substance: CYCLOBENZAPRINE
     Dosage: UNK
  24. PREDNISONE [Concomitant]
     Active Substance: PREDNISONE
     Dosage: UNK
  25. CORTICOSTEROID NOS [Concomitant]
     Active Substance: CORTICOSTEROID NOS
  26. CYCLOBENZAPRINE [Concomitant]
     Active Substance: CYCLOBENZAPRINE

REACTIONS (5)
  - Infection [Unknown]
  - Asthma [Not Recovered/Not Resolved]
  - Dyspnoea [Unknown]
  - Impaired quality of life [Recovering/Resolving]
  - Drug ineffective [Unknown]

NARRATIVE: CASE EVENT DATE: 20220101
